FAERS Safety Report 5339139-5 (Version None)
Quarter: 2007Q2

REPORT INFORMATION
  Report Type: 
  Country: None (occurrence: None)
  Receive Date: 20070524
  Receipt Date: 20070509
  Transmission Date: 20071010
  Serious: Yes (Death)
  Sender: FDA-Public Use
  Company Number: 2007BM000049

PATIENT
  Age: 71 Year
  Sex: Male

DRUGS (3)
  1. PREDNISOLONE [Suspect]
     Dosage: 60 MG;QD;PO
     Route: 048
  2. METHYLPREDNISOLONE 16MG TAB [Suspect]
     Dosage: 1 G;QD;
  3. ORAPRED [Suspect]

REACTIONS (10)
  - ACIDOSIS [None]
  - BRONCHOPULMONARY ASPERGILLOSIS [None]
  - CONDITION AGGRAVATED [None]
  - CYTOMEGALOVIRUS INFECTION [None]
  - GLOMERULONEPHRITIS RAPIDLY PROGRESSIVE [None]
  - LUNG INFECTION [None]
  - MICROSCOPIC POLYANGIITIS [None]
  - PNEUMONIA [None]
  - RENAL FAILURE [None]
  - RESPIRATORY FAILURE [None]
